FAERS Safety Report 5289373-8 (Version None)
Quarter: 2007Q2

REPORT INFORMATION
  Report Type: 
  Country: None (occurrence: None)
  Receive Date: 20070406
  Receipt Date: 20070330
  Transmission Date: 20071010
  Serious: Yes (Other)
  Sender: FDA-Public Use
  Company Number: HK-BRISTOL-MYERS SQUIBB COMPANY-13735196

PATIENT
  Sex: Male

DRUGS (3)
  1. REYATAZ [Suspect]
     Route: 048
     Dates: start: 20060501
  2. RITONAVIR [Suspect]
  3. COMBIVIR [Suspect]

REACTIONS (1)
  - CHOLECYSTITIS [None]
